FAERS Safety Report 25895149 (Version 1)
Quarter: 2025Q4

REPORT INFORMATION
  Report Type: Spontaneous
  Country: EU (occurrence: EU)
  Receive Date: 20251008
  Receipt Date: 20251008
  Transmission Date: 20260117
  Serious: Yes (Hospitalization, Congenital Anomaly, Other)
  Sender: PHARMOBEDIENT CONSULTING, LLC
  Company Number: EU-Pharmobedient-000289

PATIENT
  Age: 32 Week
  Weight: 1.4 kg

DRUGS (1)
  1. IBUPROFEN [Suspect]
     Active Substance: IBUPROFEN
     Indication: Patent ductus arteriosus

REACTIONS (5)
  - Treatment failure [Unknown]
  - Patent ductus arteriosus [Recovered/Resolved]
  - Condition aggravated [Unknown]
  - Cardiac output decreased [Recovering/Resolving]
  - Pulmonary vascular disorder [Recovering/Resolving]
